FAERS Safety Report 20680967 (Version 7)
Quarter: 2022Q4

REPORT INFORMATION
  Report Type: Spontaneous
  Country: US (occurrence: US)
  Receive Date: 20220406
  Receipt Date: 20221214
  Transmission Date: 20230112
  Serious: No
  Sender: FDA-Public Use
  Company Number: US-PFIZER INC-2021872023

PATIENT
  Age: 66 Year
  Sex: Female

DRUGS (1)
  1. EUCRISA [Suspect]
     Active Substance: CRISABOROLE
     Indication: Dermatitis atopic
     Dosage: UNK, 2X/DAY (APPLY BID TO AA OF HANDS, ARMS, FACE PRN/ FOR FLARES BELOW NECK BID PRN)
     Route: 061

REACTIONS (2)
  - Drug ineffective [Unknown]
  - Pruritus [Unknown]
